FAERS Safety Report 17721832 (Version 1)
Quarter: 2020Q2

REPORT INFORMATION
  Report Type: Spontaneous
  Country: FR (occurrence: FR)
  Receive Date: 20200429
  Receipt Date: 20200429
  Transmission Date: 20200714
  Serious: Yes (Death, Other)
  Sender: FDA-Public Use
  Company Number: FR-ACCORD-179992

PATIENT
  Age: 67 Year
  Sex: Male
  Weight: 75.6 kg

DRUGS (7)
  1. DOCETAXEL. [Interacting]
     Active Substance: DOCETAXEL
     Indication: OESOPHAGEAL CARCINOMA
     Route: 041
     Dates: start: 20200309, end: 20200309
  2. FLUOROURACIL. [Interacting]
     Active Substance: FLUOROURACIL
     Indication: OESOPHAGEAL CARCINOMA
     Route: 041
     Dates: start: 20200309, end: 20200309
  3. CANDESARTAN. [Interacting]
     Active Substance: CANDESARTAN
     Indication: HYPERTENSION
     Route: 048
     Dates: start: 20200310, end: 20200314
  4. EXFORGE [Interacting]
     Active Substance: AMLODIPINE BESYLATE\VALSARTAN
     Indication: HYPERTENSION
     Dosage: STRENGTH: 10 MG / 160 MG
     Route: 048
     Dates: end: 20200314
  5. CISPLATIN. [Suspect]
     Active Substance: CISPLATIN
     Indication: OESOPHAGEAL CARCINOMA
     Route: 041
     Dates: start: 20200309, end: 20200309
  6. AUGMENTIN [Interacting]
     Active Substance: AMOXICILLIN\CLAVULANATE POTASSIUM
     Indication: ANTIBIOTIC THERAPY
     Route: 042
     Dates: start: 20200303, end: 20200310
  7. INDAPAMIDE. [Interacting]
     Active Substance: INDAPAMIDE
     Indication: HYPERTENSION
     Route: 048
     Dates: end: 20200314

REACTIONS (5)
  - Hypovolaemic shock [Fatal]
  - Diarrhoea [Fatal]
  - Gastrointestinal ischaemia [Fatal]
  - Hepatic ischaemia [Fatal]
  - Drug interaction [Unknown]

NARRATIVE: CASE EVENT DATE: 202003
